FAERS Safety Report 8609805-4 (Version None)
Quarter: 2012Q3

REPORT INFORMATION
  Report Type: 
  Country: None (occurrence: None)
  Receive Date: 20120821
  Receipt Date: 20120813
  Transmission Date: 20120928
  Serious: Yes (Hospitalization, Other)
  Sender: FDA-Public Use
  Company Number: ES-ABBOTT-12P-144-0968888-00

PATIENT
  Age: 38 Year
  Sex: Male

DRUGS (3)
  1. SEROQUEL [Suspect]
     Indication: MANIA
     Route: 048
     Dates: start: 20120704, end: 20120717
  2. DEPAKINE CHRONO [Suspect]
     Route: 048
     Dates: start: 20120712, end: 20120712
  3. DEPAKINE CHRONO [Suspect]
     Indication: EPILEPSY
     Route: 048
     Dates: end: 20120711

REACTIONS (3)
  - CONSTIPATION [None]
  - OEDEMA PERIPHERAL [None]
  - PLEURAL EFFUSION [None]
